FAERS Safety Report 23432878 (Version 1)
Quarter: 2024Q1

REPORT INFORMATION
  Report Type: Spontaneous
  Country: US (occurrence: US)
  Receive Date: 20240123
  Receipt Date: 20240123
  Transmission Date: 20240410
  Serious: Yes (Death, Other)
  Sender: FDA-Public Use
  Company Number: US-BIOVITRUM-2024-US-001262

PATIENT
  Age: 12 Month
  Sex: Male
  Weight: 11.02 kg

DRUGS (9)
  1. SYNAGIS [Suspect]
     Active Substance: PALIVIZUMAB
     Indication: Tracheostomy
     Dosage: ONCE A MONTH
     Route: 030
  2. SYNAGIS [Suspect]
     Active Substance: PALIVIZUMAB
     Indication: Dependence on respirator
  3. SYNAGIS [Suspect]
     Active Substance: PALIVIZUMAB
     Indication: Illness
  4. SYNAGIS [Suspect]
     Active Substance: PALIVIZUMAB
     Indication: Hypoxic-ischaemic encephalopathy
  5. LEVETIRACETAM [Concomitant]
     Active Substance: LEVETIRACETAM
     Indication: Product used for unknown indication
     Dosage: 100 MG/ML
  6. CLOBAZAM [Concomitant]
     Active Substance: CLOBAZAM
     Indication: Product used for unknown indication
     Dosage: 2.5 MG/ML
  7. GLYCOPYRROLATE [Concomitant]
     Active Substance: GLYCOPYRROLATE
     Indication: Product used for unknown indication
  8. BACLOFEN [Concomitant]
     Active Substance: BACLOFEN
     Indication: Product used for unknown indication
  9. GABAPENTIN [Concomitant]
     Active Substance: GABAPENTIN
     Indication: Product used for unknown indication
     Dosage: 100 PERCENT POWDER

REACTIONS (2)
  - Death [Fatal]
  - Off label use [Unknown]

NARRATIVE: CASE EVENT DATE: 20240114
